FAERS Safety Report 15702279 (Version 1)
Quarter: 2018Q4

REPORT INFORMATION
  Report Type: Spontaneous
  Country: CA (occurrence: CA)
  Receive Date: 20181209
  Receipt Date: 20181209
  Transmission Date: 20190205
  Serious: Yes (Other)
  Sender: FDA-Public Use
  Company Number: CA-CONCORDIA PHARMACEUTICALS INC.-GSH201811-004021

PATIENT
  Sex: Female

DRUGS (7)
  1. PLAQUENIL [Suspect]
     Active Substance: HYDROXYCHLOROQUINE SULFATE
     Indication: RHEUMATOID ARTHRITIS
     Route: 065
  2. CLINDAMYCIN. [Concomitant]
     Active Substance: CLINDAMYCIN
  3. VITAMINS [Concomitant]
     Active Substance: VITAMINS
  4. PLAQUENIL [Suspect]
     Active Substance: HYDROXYCHLOROQUINE SULFATE
     Route: 065
  5. SULFASALAZINE. [Concomitant]
     Active Substance: SULFASALAZINE
     Indication: RHEUMATOID ARTHRITIS
     Dosage: 4 PILLS
  6. HUMIRA [Concomitant]
     Active Substance: ADALIMUMAB
  7. ROGAINE [Concomitant]
     Active Substance: MINOXIDIL
     Indication: ALOPECIA

REACTIONS (4)
  - Gait disturbance [Unknown]
  - Rheumatoid arthritis [Unknown]
  - Inflammation [Unknown]
  - Therapeutic response decreased [Unknown]
